FAERS Safety Report 11458791 (Version 1)
Quarter: 2015Q3

REPORT INFORMATION
  Report Type: Spontaneous
  Country: US (occurrence: US)
  Receive Date: 20150904
  Receipt Date: 20150904
  Transmission Date: 20151125
  Serious: Yes (Other)
  Sender: FDA-Public Use
  Company Number: US-TAKEDA-2014TUS005467

PATIENT

DRUGS (14)
  1. PRANDIN                            /01393601/ [Concomitant]
     Dosage: UNK, (MAYBE LONGER) INTERMITTENTLY
     Dates: start: 1998, end: 1999
  2. HUMALOG [Concomitant]
     Active Substance: INSULIN LISPRO
     Dosage: UNK, INTERMITTENTLY (UNSURE OF DATES)
     Dates: start: 1971
  3. REZULIN [Concomitant]
     Active Substance: TROGLITAZONE
     Dosage: UNK, MAYBE LONGER
     Dates: start: 1999
  4. GLUCOTROL [Concomitant]
     Active Substance: GLIPIZIDE
     Dosage: UNK, (MAYBE LONGER) INTERMITTENTLY
     Dates: start: 1997, end: 2000
  5. AMARYL [Concomitant]
     Active Substance: GLIMEPIRIDE
     Dosage: UNK, MAYBE LONGER
     Dates: start: 1999
  6. STARLIX [Concomitant]
     Active Substance: NATEGLINIDE
     Dosage: UNK, (MAYBE LONGER) INTERMITTENTLY
     Dates: start: 2003, end: 2009
  7. METFORMIN [Concomitant]
     Active Substance: METFORMIN HYDROCHLORIDE
     Dosage: UNK, (MAYBE LONGER) INTERMITTENTLY
     Dates: start: 1997, end: 2003
  8. AVANDIA [Concomitant]
     Active Substance: ROSIGLITAZONE MALEATE
     Dosage: UNK
     Dates: start: 2004
  9. ACTOS [Suspect]
     Active Substance: PIOGLITAZONE HYDROCHLORIDE
     Indication: TYPE 2 DIABETES MELLITUS
     Dosage: 15 MG, UNK
     Route: 048
     Dates: start: 200504, end: 200505
  10. ACTOS [Suspect]
     Active Substance: PIOGLITAZONE HYDROCHLORIDE
     Dosage: 30 MG, UNK
     Route: 048
     Dates: start: 200505, end: 200506
  11. GLUCOPHAGE [Concomitant]
     Active Substance: METFORMIN HYDROCHLORIDE
     Dosage: UNK, (MAYBE LONGER) INTERMITTENTLY
     Dates: start: 1997, end: 2003
  12. LANTUS [Concomitant]
     Active Substance: INSULIN GLARGINE
     Dosage: UNK, (MAYBE LONGER), INTERMITTENTLY
     Dates: start: 2005, end: 2009
  13. ACTOS [Suspect]
     Active Substance: PIOGLITAZONE HYDROCHLORIDE
     Dosage: 45 MG, UNK
     Route: 048
     Dates: start: 200506, end: 200908
  14. IFOSFAMIDE. [Concomitant]
     Active Substance: IFOSFAMIDE
     Dosage: UNK

REACTIONS (1)
  - Bladder cancer [Unknown]

NARRATIVE: CASE EVENT DATE: 20070509
